FAERS Safety Report 21361701 (Version 2)
Quarter: 2022Q4

REPORT INFORMATION
  Report Type: Report from Study
  Country: NL (occurrence: None)
  Receive Date: 20220921
  Receipt Date: 20221010
  Transmission Date: 20230113
  Serious: Yes (Other)
  Sender: FDA-Public Use
  Company Number: NL-Merck Healthcare KGaA-9352234

PATIENT
  Age: 48 Year
  Sex: Female
  Weight: 95 kg

DRUGS (1)
  1. REBIF [Suspect]
     Active Substance: INTERFERON BETA-1A
     Indication: Multiple sclerosis
     Route: 058
     Dates: start: 2015, end: 20220902

REACTIONS (2)
  - Renal impairment [Recovered/Resolved]
  - Drug ineffective [Unknown]
